FAERS Safety Report 16183445 (Version 2)
Quarter: 2019Q2

REPORT INFORMATION
  Report Type: Other
  Country: FR (occurrence: FR)
  Receive Date: 20190411
  Receipt Date: 20190415
  Transmission Date: 20190711
  Serious: Yes (Death, Hospitalization, Other)
  Sender: FDA-Public Use
  Company Number: FR-ASTELLAS-2019US015655

PATIENT
  Age: 62 Year
  Sex: Male

DRUGS (27)
  1. PROGRAF [Suspect]
     Active Substance: TACROLIMUS\TACROLIMUS ANHYDROUS
     Indication: PROPHYLAXIS AGAINST TRANSPLANT REJECTION
     Route: 048
  2. TAZOCILLINE [Suspect]
     Active Substance: PIPERACILLIN SODIUM\TAZOBACTAM SODIUM
     Indication: PNEUMOCOCCAL INFECTION
     Route: 042
     Dates: start: 201502, end: 2015
  3. CELLCEPT [Suspect]
     Active Substance: MYCOPHENOLATE MOFETIL\MYCOPHENOLATE MOFETIL HYDROCHLORIDE
     Route: 065
  4. COTRIMOXAZOLE [Suspect]
     Active Substance: SULFAMETHOXAZOLE\TRIMETHOPRIM
     Indication: INFECTION PROPHYLAXIS
     Dosage: 800 MG, EVERY OTHER DAY (Q48H)
     Route: 048
     Dates: start: 20150303
  5. METHYLPREDNISOLONE HEMISUCCINATE [Suspect]
     Active Substance: METHYLPREDNISOLONE HEMISUCCINATE
     Indication: LIVER TRANSPLANT
     Dosage: UNK UNK, UNKNOWN FREQ.
     Route: 065
     Dates: start: 20150303
  6. FLUMAZENIL. [Concomitant]
     Active Substance: FLUMAZENIL
     Indication: LOSS OF CONSCIOUSNESS
     Dosage: UNK, UNKNOWN FREQ.
     Route: 042
     Dates: start: 201502, end: 201502
  7. FLUCONAZOLE. [Concomitant]
     Active Substance: FLUCONAZOLE
     Indication: PRODUCT USED FOR UNKNOWN INDICATION
     Dosage: UNK UNK, UNKNOWN FREQ.
     Route: 065
  8. CELLCEPT [Suspect]
     Active Substance: MYCOPHENOLATE MOFETIL\MYCOPHENOLATE MOFETIL HYDROCHLORIDE
     Indication: LIVER TRANSPLANT
     Route: 065
     Dates: end: 2015
  9. BASILIXIMAB [Suspect]
     Active Substance: BASILIXIMAB
     Indication: PROPHYLAXIS AGAINST TRANSPLANT REJECTION
     Dosage: UNK UNK, UNKNOWN FREQ.
     Route: 065
  10. BASILIXIMAB [Suspect]
     Active Substance: BASILIXIMAB
     Dosage: UNK UNK, UNKNOWN FREQ.
     Route: 065
     Dates: start: 20150303
  11. TAZOCILLINE [Suspect]
     Active Substance: PIPERACILLIN SODIUM\TAZOBACTAM SODIUM
     Indication: INFECTION PROPHYLAXIS
     Dosage: UNK UNK, UNKNOWN FREQ.
     Route: 065
     Dates: start: 201503, end: 201503
  12. TAZOCILLINE [Suspect]
     Active Substance: PIPERACILLIN SODIUM\TAZOBACTAM SODIUM
     Indication: ANTIBIOTIC THERAPY
  13. TAZOCILLINE [Suspect]
     Active Substance: PIPERACILLIN SODIUM\TAZOBACTAM SODIUM
     Indication: ENTEROCOCCAL INFECTION
     Dosage: UNK UNK, UNKNOWN FREQ.
     Route: 065
  14. CASPOFUNGIN [Suspect]
     Active Substance: CASPOFUNGIN
     Indication: INFECTION PROPHYLAXIS
     Route: 042
     Dates: start: 201503, end: 201503
  15. CASPOFUNGIN [Suspect]
     Active Substance: CASPOFUNGIN
     Indication: FUNGAEMIA
  16. SOLU-MEDROL [Suspect]
     Active Substance: METHYLPREDNISOLONE SODIUM SUCCINATE
     Dosage: UNK UNK, UNKNOWN FREQ.
     Route: 065
     Dates: start: 20150303
  17. PROGRAF [Suspect]
     Active Substance: TACROLIMUS\TACROLIMUS ANHYDROUS
     Indication: LIVER TRANSPLANT
     Route: 048
  18. COTRIMOXAZOLE [Suspect]
     Active Substance: SULFAMETHOXAZOLE\TRIMETHOPRIM
     Indication: ANTI-INFECTIVE THERAPY
  19. COTRIMOXAZOLE [Suspect]
     Active Substance: SULFAMETHOXAZOLE\TRIMETHOPRIM
     Indication: ANTIFUNGAL PROPHYLAXIS
  20. NOREPINEPHRINE. [Concomitant]
     Active Substance: NOREPINEPHRINE
     Indication: PRODUCT USED FOR UNKNOWN INDICATION
     Dosage: UNK UNK, UNKNOWN FREQ.
     Route: 065
     Dates: start: 2015, end: 2015
  21. COTRIMOXAZOLE [Suspect]
     Active Substance: SULFAMETHOXAZOLE\TRIMETHOPRIM
     Indication: ANTIBIOTIC THERAPY
  22. TACROLIMUS. [Suspect]
     Active Substance: TACROLIMUS
     Indication: LIVER TRANSPLANT
     Dosage: UNK UNK, UNKNOWN FREQ.
     Route: 065
     Dates: start: 20150303
  23. SOLU-MEDROL [Suspect]
     Active Substance: METHYLPREDNISOLONE SODIUM SUCCINATE
     Indication: PROPHYLAXIS AGAINST TRANSPLANT REJECTION
     Dosage: UNK UNK, UNKNOWN FREQ.
     Route: 065
  24. BASILIXIMAB [Suspect]
     Active Substance: BASILIXIMAB
     Indication: LIVER TRANSPLANT
     Dosage: UNK UNK, UNKNOWN FREQ.
     Route: 065
  25. SOLU-MEDROL [Suspect]
     Active Substance: METHYLPREDNISOLONE SODIUM SUCCINATE
     Indication: LIVER TRANSPLANT
     Route: 065
     Dates: end: 2015
  26. NORADRENALINE                      /00127501/ [Concomitant]
     Active Substance: NOREPINEPHRINE
     Indication: ANURIA
     Dosage: UNK UNK, UNKNOWN FREQ.
     Route: 065
  27. FLUMAZENIL. [Concomitant]
     Active Substance: FLUMAZENIL
     Indication: SOMNOLENCE
     Dosage: UNK UNK, UNKNOWN FREQ.
     Route: 065

REACTIONS (7)
  - Multiple organ dysfunction syndrome [Fatal]
  - Systemic mycosis [Fatal]
  - Septic shock [Fatal]
  - Sepsis [Fatal]
  - Enterococcal infection [Unknown]
  - Hyperthermia [Fatal]
  - Pneumococcal infection [Unknown]

NARRATIVE: CASE EVENT DATE: 201503
